FAERS Safety Report 11049424 (Version 2)
Quarter: 2015Q2

REPORT INFORMATION
  Report Type: Report from Study
  Country: CA (occurrence: CA)
  Receive Date: 20150420
  Receipt Date: 20150423
  Transmission Date: 20150821
  Serious: Yes (Other)
  Sender: FDA-Public Use
  Company Number: CA-ABBVIE-15K-028-1376882-00

PATIENT
  Sex: Female
  Weight: 54.48 kg

DRUGS (3)
  1. HUMIRA [Suspect]
     Active Substance: ADALIMUMAB
     Indication: PSORIATIC ARTHROPATHY
     Route: 058
     Dates: start: 20130422, end: 20150323
  2. LUVOX [Concomitant]
     Active Substance: FLUVOXAMINE MALEATE
     Indication: ANTIDEPRESSANT THERAPY
  3. ENTECAVIR. [Concomitant]
     Active Substance: ENTECAVIR
     Indication: LIVER DISORDER

REACTIONS (4)
  - Tooth disorder [Recovering/Resolving]
  - Procedural pain [Recovering/Resolving]
  - Artificial crown procedure [Not Recovered/Not Resolved]
  - Post procedural infection [Recovering/Resolving]

NARRATIVE: CASE EVENT DATE: 2015
